FAERS Safety Report 11765955 (Version 1)
Quarter: 2015Q4

REPORT INFORMATION
  Report Type: Spontaneous
  Country: PL (occurrence: PL)
  Receive Date: 20151122
  Receipt Date: 20151122
  Transmission Date: 20160304
  Serious: Yes (Other)
  Sender: FDA-Public Use
  Company Number: PHHY2015PL147317

PATIENT
  Age: 69 Year
  Sex: Male

DRUGS (2)
  1. NILOTINIB [Concomitant]
     Active Substance: NILOTINIB
     Indication: PRODUCT USED FOR UNKNOWN INDICATION
     Dosage: 2X400MG/DAY
     Route: 065
     Dates: start: 200411
  2. IMATINIB [Suspect]
     Active Substance: IMATINIB
     Indication: PRODUCT USED FOR UNKNOWN INDICATION
     Dosage: 400 MG, QD
     Route: 065
     Dates: start: 200310, end: 201411

REACTIONS (3)
  - Type 2 diabetes mellitus [Unknown]
  - Drug resistance [Unknown]
  - Therapeutic response decreased [Unknown]
